FAERS Safety Report 15940262 (Version 1)
Quarter: 2019Q1

REPORT INFORMATION
  Report Type: Report from Study
  Country: US (occurrence: US)
  Receive Date: 20190208
  Receipt Date: 20190208
  Transmission Date: 20190417
  Serious: Yes (Hospitalization, Other)
  Sender: FDA-Public Use
  Company Number: US-BRISTOL-MYERS SQUIBB COMPANY-BMS-2018-112793

PATIENT
  Age: 38 Year
  Sex: Female
  Weight: 59.86 kg

DRUGS (21)
  1. TYLENOL [Concomitant]
     Active Substance: ACETAMINOPHEN
     Indication: BACK PAIN
     Dosage: 1000 MG, PRN
     Route: 048
  2. MAGNESIUM SULPHATE                 /01097001/ [Concomitant]
     Active Substance: MAGNESIUM SULFATE
     Indication: PRODUCT USED FOR UNKNOWN INDICATION
     Dosage: 2 G, UNK
     Route: 042
     Dates: start: 20171130
  3. GABAPENTIN. [Concomitant]
     Active Substance: GABAPENTIN
     Indication: ARTHRALGIA
     Route: 065
  4. KCL [Concomitant]
     Active Substance: POTASSIUM CHLORIDE
     Indication: SUPPLEMENTATION THERAPY
     Dosage: 30 MEQ, UNK
     Route: 042
  5. INJECTAFER [Concomitant]
     Active Substance: FERRIC CARBOXYMALTOSE
     Indication: IRON DEFICIENCY
     Dosage: 750 MG, UNK
     Route: 042
     Dates: start: 20180222, end: 20180308
  6. IPILIMUMAB [Suspect]
     Active Substance: IPILIMUMAB
     Indication: LIPOSARCOMA
     Dosage: 57 MG, Q12WK
     Route: 042
     Dates: start: 20171214, end: 20181108
  7. TRABECTEDIN [Suspect]
     Active Substance: TRABECTEDIN
     Indication: LIPOSARCOMA
     Dosage: 1.86 MG, Q3WK
     Route: 042
     Dates: start: 20171130, end: 20181025
  8. PEPTO-BISMOL [Concomitant]
     Active Substance: BISMUTH SUBSALICYLATE
     Indication: GASTROOESOPHAGEAL REFLUX DISEASE
     Route: 065
  9. GABAPENTIN. [Concomitant]
     Active Substance: GABAPENTIN
     Indication: BACK PAIN
     Route: 065
  10. ZOFRAN [Concomitant]
     Active Substance: ONDANSETRON HYDROCHLORIDE
     Indication: VOMITING
     Dosage: 14 MG, UNK
     Route: 042
     Dates: start: 20171130
  11. ZOFRAN [Concomitant]
     Active Substance: ONDANSETRON HYDROCHLORIDE
     Indication: NAUSEA
     Dosage: 8 MG, UNK
     Route: 048
     Dates: start: 20171228
  12. DECADRON [Concomitant]
     Active Substance: DEXAMETHASONE
     Indication: PRODUCT USED FOR UNKNOWN INDICATION
     Dosage: 4 MG, UNK
     Route: 042
     Dates: start: 20171201
  13. NORMAL SALINE [Concomitant]
     Active Substance: SODIUM CHLORIDE
     Indication: FLUID REPLACEMENT
     Dosage: 500 ML, UNK
     Route: 042
  14. OLANZAPINE. [Concomitant]
     Active Substance: OLANZAPINE
     Indication: NAUSEA
     Dosage: 2.5 MG, PRN
     Route: 048
  15. VENLAFAXINE [Concomitant]
     Active Substance: VENLAFAXINE HYDROCHLORIDE
     Indication: ANXIETY
     Dosage: 75 MG, QD
     Route: 048
  16. DECADRON [Concomitant]
     Active Substance: DEXAMETHASONE
     Indication: VOMITING
     Dosage: 20 MG, UNK
     Route: 042
     Dates: start: 20171130
  17. KCL [Concomitant]
     Active Substance: POTASSIUM CHLORIDE
     Indication: PRODUCT USED FOR UNKNOWN INDICATION
     Dosage: 15 MEQ, PRN
     Route: 042
     Dates: start: 20171201
  18. NIVOLUMAB [Suspect]
     Active Substance: NIVOLUMAB
     Indication: LIPOSARCOMA
     Dosage: 171 MG, Q2WK
     Route: 042
     Dates: start: 20171214
  19. TYLENOL [Concomitant]
     Active Substance: ACETAMINOPHEN
     Indication: PRODUCT USED FOR UNKNOWN INDICATION
     Dosage: 650 MG, UNK
     Route: 048
     Dates: start: 20171221, end: 20171221
  20. CURCUMIN [Concomitant]
     Active Substance: CURCUMIN
     Indication: SUPPLEMENTATION THERAPY
     Dosage: 2 G, BID
     Route: 048
  21. MAGNESIUM SULPHATE                 /01097001/ [Concomitant]
     Active Substance: MAGNESIUM SULFATE
     Indication: PRODUCT USED FOR UNKNOWN INDICATION
     Dosage: 1 G, PRN
     Route: 042
     Dates: start: 20171201

REACTIONS (1)
  - Autoimmune haemolytic anaemia [Recovered/Resolved]

NARRATIVE: CASE EVENT DATE: 20181127
